FAERS Safety Report 10125890 (Version 1)
Quarter: 2014Q2

REPORT INFORMATION
  Report Type: Report from Study
  Country: BR (occurrence: BR)
  Receive Date: 20140427
  Receipt Date: 20140427
  Transmission Date: 20141212
  Serious: Yes (Other)
  Sender: FDA-Public Use
  Company Number: PHHY2014BR047545

PATIENT
  Sex: Female
  Weight: 75 kg

DRUGS (4)
  1. SANDOSTATIN LAR [Suspect]
     Indication: ACROMEGALY
     Dosage: 20 MG, (28 TO 28 DAYS)
  2. CLONAZEPAM [Suspect]
     Indication: HEADACHE
     Dosage: 2 DF, QD (A DAY)
  3. MICARDIS [Suspect]
     Indication: HYPERTENSION
     Dosage: 1 DF, QD (A DAY)
  4. GLIFAGE [Suspect]
     Indication: DIABETES MELLITUS
     Dosage: 2 DF, QD (A DAY)

REACTIONS (9)
  - Blood pressure increased [Recovering/Resolving]
  - Hypoacusis [Recovering/Resolving]
  - Weight increased [Recovering/Resolving]
  - Malaise [Recovering/Resolving]
  - Skin hypertrophy [Recovering/Resolving]
  - Eye disorder [Recovering/Resolving]
  - Blood glucose increased [Recovering/Resolving]
  - Dizziness [Recovering/Resolving]
  - Headache [Recovering/Resolving]
